FAERS Safety Report 6803035-4 (Version None)
Quarter: 2010Q2

REPORT INFORMATION
  Report Type: 
  Country: None (occurrence: None)
  Receive Date: 20100628
  Receipt Date: 20100210
  Transmission Date: 20101027
  Serious: Yes (Other)
  Sender: FDA-Public Use
  Company Number: AU-JNJFOC-20100607649

PATIENT
  Age: 33 Year
  Sex: Male

DRUGS (1)
  1. RISPERIDONE [Suspect]
     Indication: SCHIZOPHRENIA
     Route: 065

REACTIONS (6)
  - BRADYKINESIA [None]
  - CATATONIA [None]
  - COGWHEEL RIGIDITY [None]
  - PARKINSONIAN GAIT [None]
  - SALIVARY HYPERSECRETION [None]
  - TREMOR [None]
